FAERS Safety Report 12592863 (Version 1)
Quarter: 2016Q3

REPORT INFORMATION
  Report Type: Report from Study
  Country: SA (occurrence: SA)
  Receive Date: 20160726
  Receipt Date: 20160726
  Transmission Date: 20161109
  Serious: Yes (Death, Hospitalization)
  Sender: FDA-Public Use
  Company Number: SA-ELI_LILLY_AND_COMPANY-SA201607005594

PATIENT
  Sex: Male
  Weight: 57 kg

DRUGS (1)
  1. CETUXIMAB [Suspect]
     Active Substance: CETUXIMAB
     Indication: COLORECTAL CANCER METASTATIC
     Dosage: 400 MG/M2, UNKNOWN
     Route: 065
     Dates: start: 20150610, end: 20160608

REACTIONS (5)
  - Decreased appetite [Unknown]
  - Eastern Cooperative Oncology Group performance status worsened [Unknown]
  - Disease progression [Fatal]
  - Hypophagia [Unknown]
  - Fatigue [Unknown]

NARRATIVE: CASE EVENT DATE: 20150626
